FAERS Safety Report 6945060-9 (Version None)
Quarter: 2010Q3

REPORT INFORMATION
  Report Type: 
  Country: None (occurrence: None)
  Receive Date: 20100827
  Receipt Date: 20100816
  Transmission Date: 20110219
  Serious: Yes (Other)
  Sender: FDA-Public Use
  Company Number: PHHY2010CA54407

PATIENT
  Sex: Female

DRUGS (1)
  1. SANDOSTATIN LAR [Suspect]
     Indication: PANCREATICODUODENECTOMY
     Dosage: 30 MG, QMO
     Route: 030
     Dates: start: 20100813

REACTIONS (1)
  - BLOOD PRESSURE DECREASED [None]
